FAERS Safety Report 13910020 (Version 27)
Quarter: 2022Q3

REPORT INFORMATION
  Report Type: Report from Study
  Country: FR (occurrence: FR)
  Receive Date: 20170828
  Receipt Date: 20220916
  Transmission Date: 20221027
  Serious: Yes (Life-Threatening, Hospitalization, Other)
  Sender: FDA-Public Use
  Company Number: PHHY2017FR125758

PATIENT
  Age: 15 Year
  Sex: Female
  Weight: 36 kg

DRUGS (4)
  1. GLIVEC [Suspect]
     Active Substance: IMATINIB MESYLATE
     Indication: Philadelphia positive acute lymphocytic leukaemia
     Dosage: 300 MG, QD
     Route: 048
     Dates: start: 20170210, end: 20170317
  2. GLIVEC [Suspect]
     Active Substance: IMATINIB MESYLATE
     Dosage: 300 MG, QD
     Route: 048
     Dates: start: 20170323
  3. METHOTREXATE [Concomitant]
     Active Substance: METHOTREXATE
     Indication: Acute lymphocytic leukaemia
     Dosage: 3.2 G, UNK
     Route: 065
     Dates: start: 20170727, end: 20170727
  4. ASPARAGINASE [Concomitant]
     Active Substance: ASPARAGINASE
     Indication: Acute lymphocytic leukaemia
     Dosage: 7700 IU, UNK
     Route: 065
     Dates: start: 20170908

REACTIONS (21)
  - Pseudomonas infection [Recovered/Resolved]
  - Colitis [Recovered/Resolved]
  - Abdominal pain [Recovering/Resolving]
  - Febrile neutropenia [Recovered/Resolved]
  - Relapsing fever [Recovered/Resolved]
  - Immune reconstitution inflammatory syndrome [Unknown]
  - Enteritis [Recovered/Resolved]
  - Vomiting [Recovered/Resolved]
  - Pyrexia [Recovered/Resolved]
  - Febrile bone marrow aplasia [Recovered/Resolved]
  - Asthenia [Recovering/Resolving]
  - Febrile bone marrow aplasia [Recovered/Resolved]
  - Asthenia [Recovered/Resolved]
  - Posterior reversible encephalopathy syndrome [Unknown]
  - Seizure [Recovered/Resolved]
  - Hypothermia [Recovered/Resolved]
  - Hypokalaemia [Unknown]
  - Febrile bone marrow aplasia [Recovered/Resolved]
  - Hypoalbuminaemia [Unknown]
  - Hypocalcaemia [Unknown]
  - Tachycardia [Unknown]

NARRATIVE: CASE EVENT DATE: 20170807
